FAERS Safety Report 4379884-1 (Version None)
Quarter: 2004Q2

REPORT INFORMATION
  Report Type: 
  Country: None (occurrence: None)
  Receive Date: 20040614
  Receipt Date: 20040602
  Transmission Date: 20050107
  Serious: Yes (Other)
  Sender: FDA-Public Use
  Company Number: JP-JNJFOC-20040602009

PATIENT
  Age: 38 Year
  Sex: Male

DRUGS (7)
  1. RISPERDAL [Suspect]
     Indication: SCHIZOPHRENIA
     Dosage: 6 MG, IN 1 DAY, ORAL
     Route: 048
     Dates: start: 20021203, end: 20040302
  2. QUAZEPAM (UNKNOWN) QUAZEPAM [Concomitant]
  3. SENNOSIDE (UNKNOWN) ALL OTHER THERAPEUTIC PRODUCTS) UNKNOWN [Concomitant]
  4. HALOPERIDOL [Concomitant]
  5. LORAZEPAM (LORAZEPAM) UNKNOWN [Concomitant]
  6. BIPERIDEN HYDROCHLORIDE TAB [Concomitant]
  7. LORMETAZEPAM (LORMETAZEPAM) UNKNOWN [Concomitant]

REACTIONS (1)
  - HEPATIC STEATOSIS [None]
